FAERS Safety Report 13908797 (Version 2)
Quarter: 2017Q3

REPORT INFORMATION
  Report Type: Report from Study
  Country: IE (occurrence: IE)
  Receive Date: 20170827
  Receipt Date: 20170908
  Transmission Date: 20171127
  Serious: Yes (Hospitalization)
  Sender: FDA-Public Use
  Company Number: PHFR2017IE006960

PATIENT
  Sex: Male

DRUGS (1)
  1. COSENTYX [Suspect]
     Active Substance: SECUKINUMAB
     Indication: PSORIATIC ARTHROPATHY
     Dosage: 150 MG, UNK
     Route: 058
     Dates: start: 20170712

REACTIONS (6)
  - Musculoskeletal pain [Recovering/Resolving]
  - Drug effect incomplete [Unknown]
  - Burning sensation [Unknown]
  - Dyspnoea [Unknown]
  - Back pain [Recovering/Resolving]
  - Erythema [Unknown]
